FAERS Safety Report 9913907 (Version 3)
Quarter: 2014Q2

REPORT INFORMATION
  Report Type: Spontaneous
  Country: US (occurrence: US)
  Receive Date: 20140220
  Receipt Date: 20140521
  Transmission Date: 20141212
  Serious: Yes (Hospitalization)
  Sender: FDA-Public Use
  Company Number: US-BAYER-2014-026726

PATIENT
  Age: 26 Year
  Sex: Female
  Weight: 71.2 kg

DRUGS (2)
  1. MIRENA [Suspect]
     Indication: CONTRACEPTION
     Dosage: 20 MCG/24HR, CONT
     Route: 015
     Dates: start: 20130214, end: 20130329
  2. LAMICTAL [Concomitant]
     Indication: BIPOLAR I DISORDER
     Dosage: UNK
     Dates: start: 201205

REACTIONS (10)
  - Uterine perforation [None]
  - Abdominal discomfort [None]
  - Injury [None]
  - Abdominal pain [None]
  - Emotional distress [None]
  - Scar [None]
  - Stress [None]
  - Anxiety [None]
  - Device dislocation [None]
  - Off label use [None]
